FAERS Safety Report 6030179-X (Version None)
Quarter: 2009Q1

REPORT INFORMATION
  Report Type: 
  Country: None (occurrence: None)
  Receive Date: 20090105
  Receipt Date: 20090105
  Transmission Date: 20090719
  Serious: Yes (Other)
  Sender: FDA-Public Use
  Company Number: None

PATIENT
  Age: 40 Year
  Sex: Female
  Weight: 82.5547 kg

DRUGS (1)
  1. ASMANEX TWISTHALER [Suspect]
     Indication: DYSPNOEA
     Dosage: 1 PUFF 2X DAILY INHAL
     Route: 055
     Dates: start: 20061201, end: 20080930

REACTIONS (2)
  - ARTHRALGIA [None]
  - GAIT DISTURBANCE [None]
